FAERS Safety Report 4589126-X (Version None)
Quarter: 2005Q1

REPORT INFORMATION
  Report Type: 
  Country: None (occurrence: None)
  Receive Date: 20050125
  Receipt Date: 20040817
  Transmission Date: 20050727
  Serious: No
  Sender: FDA-Public Use
  Company Number: USA040361527

PATIENT
  Age: 74 Year
  Sex: Female
  Weight: 59 kg

DRUGS (4)
  1. FORTEO [Suspect]
     Indication: OSTEOPOROSIS
     Dosage: 20 UG/1 DAY
     Dates: start: 20040121, end: 20040405
  2. PRAVACHOL [Concomitant]
  3. ZIAC [Concomitant]
  4. DITROPAN XL [Concomitant]

REACTIONS (15)
  - ARTHRALGIA [None]
  - ARTHRITIS [None]
  - ASTHENIA [None]
  - BONE DISORDER [None]
  - BONE PAIN [None]
  - DIZZINESS [None]
  - EAR DISCOMFORT [None]
  - EAR PAIN [None]
  - HEADACHE [None]
  - NAUSEA [None]
  - PAIN IN EXTREMITY [None]
  - PAIN OF SKIN [None]
  - SHOULDER DEFORMITY [None]
  - SKIN NODULE [None]
  - SOMNOLENCE [None]
